FAERS Safety Report 7713835-4 (Version None)
Quarter: 2011Q3

REPORT INFORMATION
  Report Type: 
  Country: None (occurrence: None)
  Receive Date: 20110826
  Receipt Date: 20110815
  Transmission Date: 20111222
  Serious: Yes (Other)
  Sender: FDA-Public Use
  Company Number: NL-MYLANLABS-2011S1017365

PATIENT
  Sex: Female

DRUGS (2)
  1. PROPRANOLOL [Suspect]
     Dosage: MAXIMUM DOSAGE OF 4 MG/KG/DAY
     Route: 065
  2. PROPRANOLOL [Suspect]
     Indication: HAEMANGIOMA CONGENITAL
     Dosage: STARTING DOSAGE OF 1 MG/KG/DAY
     Route: 065

REACTIONS (3)
  - NAUSEA [None]
  - HYPOGLYCAEMIA [None]
  - SLEEP DISORDER [None]
